FAERS Safety Report 5731212-2 (Version None)
Quarter: 2008Q2

REPORT INFORMATION
  Report Type: 
  Country: None (occurrence: None)
  Receive Date: 20080507
  Receipt Date: 20080422
  Transmission Date: 20081010
  Serious: No
  Sender: FDA-Public Use
  Company Number: US-BOEHRINGER INGELHEIM GMBH, GERMANY-2008-BP-06375BP

PATIENT
  Age: 56 Year
  Sex: Female

DRUGS (6)
  1. MIRAPEX [Suspect]
     Indication: RESTLESS LEGS SYNDROME
     Route: 048
     Dates: start: 20070101
  2. VERAPAMIL [Concomitant]
     Indication: SUPRAVENTRICULAR TACHYCARDIA
  3. ATENOLOL [Concomitant]
     Indication: SUPRAVENTRICULAR TACHYCARDIA
  4. ATENOLOL [Concomitant]
     Indication: HYPERTENSION
  5. CELEBREX [Concomitant]
     Indication: OSTEOARTHRITIS
  6. GLUCOSAMINE [Concomitant]

REACTIONS (1)
  - DRUG INEFFECTIVE [None]
